FAERS Safety Report 14935284 (Version 2)
Quarter: 2018Q2

REPORT INFORMATION
  Report Type: Report from Study
  Country: MX (occurrence: MX)
  Receive Date: 20180524
  Receipt Date: 20180614
  Transmission Date: 20180711
  Serious: No
  Sender: FDA-Public Use
  Company Number: MX-BAYER-2018-095721

PATIENT
  Age: 64 Year
  Sex: Female
  Weight: 60 kg

DRUGS (8)
  1. ACETAMINOPHEN. [Concomitant]
     Active Substance: ACETAMINOPHEN
  2. LATANOPROST. [Concomitant]
     Active Substance: LATANOPROST
  3. OMEPRAZOLE. [Concomitant]
     Active Substance: OMEPRAZOLE
  4. NEXAVAR [Suspect]
     Active Substance: SORAFENIB
     Indication: RENAL CELL CARCINOMA
     Dosage: 600 MG, QD
     Route: 048
     Dates: start: 20160701
  5. TRAMADOL. [Concomitant]
     Active Substance: TRAMADOL
  6. PREDNISOLONE. [Concomitant]
     Active Substance: PREDNISOLONE
  7. HYPROMELLOSE [Concomitant]
     Active Substance: HYPROMELLOSES
  8. PREGABALIN. [Concomitant]
     Active Substance: PREGABALIN

REACTIONS (5)
  - Acne [Recovered/Resolved]
  - Weight decreased [None]
  - Oral pain [Recovered/Resolved]
  - Oral discomfort [Recovered/Resolved]
  - Drug dose omission [Recovered/Resolved]

NARRATIVE: CASE EVENT DATE: 2017
